FAERS Safety Report 8003809-0 (Version None)
Quarter: 2011Q4

REPORT INFORMATION
  Report Type: 
  Country: None (occurrence: None)
  Receive Date: 20111222
  Receipt Date: 20111215
  Transmission Date: 20120403
  Serious: Yes (Other)
  Sender: FDA-Public Use
  Company Number: US-CELGENEUS-163-21880-11083140

PATIENT
  Sex: Male

DRUGS (5)
  1. LYRICA [Concomitant]
     Indication: POST HERPETIC NEURALGIA
     Dosage: 75 MILLIGRAM
     Route: 048
  2. ZOMETA [Concomitant]
     Dosage: 4 MILLIGRAM
     Route: 041
  3. REVLIMID [Suspect]
     Indication: MULTIPLE MYELOMA
     Dosage: 10 MILLIGRAM
     Route: 048
     Dates: start: 20110713, end: 20110101
  4. REVLIMID [Suspect]
     Route: 048
     Dates: start: 20110801
  5. ASPIRIN [Concomitant]
     Route: 065

REACTIONS (4)
  - BRONCHITIS [None]
  - ABSCESS ORAL [None]
  - CONSTIPATION [None]
  - ARTHROPATHY [None]
